FAERS Safety Report 9458367 (Version 1)
Quarter: 2013Q3

REPORT INFORMATION
  Report Type: Spontaneous
  Country: US (occurrence: US)
  Receive Date: 20130814
  Receipt Date: 20130814
  Transmission Date: 20140515
  Serious: Yes (Hospitalization, Other)
  Sender: FDA-Public Use
  Company Number: US-PFIZER INC-2013233089

PATIENT
  Age: 49 Year
  Sex: Male
  Weight: 94.79 kg

DRUGS (4)
  1. DEPO-MEDROL [Suspect]
     Indication: PAIN MANAGEMENT
     Dosage: 80 MG, SINGLE
     Route: 008
     Dates: start: 20130528
  2. DEPO-MEDROL [Suspect]
     Dosage: 80 MG, SINGLE
     Route: 008
     Dates: start: 20130611
  3. ULTRAM [Concomitant]
     Dosage: UNK
  4. PERCOCET [Concomitant]
     Dosage: UNK

REACTIONS (4)
  - Off label use [Unknown]
  - Central nervous system infection [Unknown]
  - Pain [Unknown]
  - White blood cell count increased [Unknown]
